FAERS Safety Report 13561508 (Version 7)
Quarter: 2018Q1

REPORT INFORMATION
  Report Type: Spontaneous
  Country: US (occurrence: US)
  Receive Date: 20170518
  Receipt Date: 20180118
  Transmission Date: 20180508
  Serious: Yes (Hospitalization, Other)
  Sender: FDA-Public Use
  Company Number: US-CLOVIS ONCOLOGY-CLO-2017-000414

PATIENT
  Age: 66 Year
  Sex: Female

DRUGS (1)
  1. RUBRACA [Suspect]
     Active Substance: RUCAPARIB CAMSYLATE
     Indication: OVARIAN CANCER
     Dosage: 600 MG, BID
     Route: 048
     Dates: start: 20170424, end: 20180110

REACTIONS (10)
  - Decreased appetite [Unknown]
  - Dyspnoea [Recovering/Resolving]
  - Cough [Unknown]
  - Fatigue [Unknown]
  - Cough [Recovered/Resolved]
  - Nausea [Unknown]
  - Asthenia [Unknown]
  - Weight decreased [Unknown]
  - Drug ineffective [Unknown]
  - Anaemia [Unknown]

NARRATIVE: CASE EVENT DATE: 2017
